FAERS Safety Report 24051221 (Version 3)
Quarter: 2024Q3

REPORT INFORMATION
  Report Type: Spontaneous
  Country: US (occurrence: US)
  Receive Date: 20240704
  Receipt Date: 20240808
  Transmission Date: 20241016
  Serious: No
  Sender: SANOFI AVENTIS
  Company Number: US-SA-2024SA193443

PATIENT
  Age: 92 Year
  Sex: Female
  Weight: 56 kg

DRUGS (33)
  1. DUPIXENT [Suspect]
     Active Substance: DUPILUMAB
     Indication: Neuropathic pruritus
     Dosage: 300 MG, QOW
     Route: 058
  2. DUPIXENT [Suspect]
     Active Substance: DUPILUMAB
     Indication: Dermatitis atopic
  3. TRINTELLIX [Suspect]
     Active Substance: VORTIOXETINE HYDROBROMIDE
     Dosage: UNK
  4. VITAMIN D3 [Concomitant]
     Active Substance: CHOLECALCIFEROL
     Dosage: UNK
  5. MIRALAX [Concomitant]
     Active Substance: POLYETHYLENE GLYCOL 3350
     Dosage: UNK
  6. ZINC [Concomitant]
     Active Substance: ZINC
     Dosage: UNK
  7. HERBALS\TURMERIC [Concomitant]
     Active Substance: HERBALS\TURMERIC
     Dosage: UNK
  8. VITAMIN C [Concomitant]
     Active Substance: ASCORBIC ACID
     Dosage: UNK
  9. COENZYME Q10 [Concomitant]
     Active Substance: DIETARY SUPPLEMENT\UBIDECARENONE
     Dosage: UNK
  10. XANAX [Concomitant]
     Active Substance: ALPRAZOLAM
     Dosage: UNK
  11. ZETIA [Concomitant]
     Active Substance: EZETIMIBE
     Dosage: UNK
  12. CLONIDINE HYDROCHLORIDE [Concomitant]
     Active Substance: CLONIDINE HYDROCHLORIDE
     Dosage: UNK
  13. SUCRALFATE [Concomitant]
     Active Substance: SUCRALFATE
     Dosage: UNK
  14. CHLORTHALIDONE [Concomitant]
     Active Substance: CHLORTHALIDONE
     Dosage: UNK
  15. METOPROLOL SUCCINATE [Concomitant]
     Active Substance: METOPROLOL SUCCINATE
     Dosage: UNK
  16. BUSPIRONE HCL [Concomitant]
     Active Substance: BUSPIRONE HYDROCHLORIDE
     Dosage: UNK
  17. NIFEDIPINE [Concomitant]
     Active Substance: NIFEDIPINE
     Dosage: UNK
  18. ATACAND [Concomitant]
     Active Substance: CANDESARTAN CILEXETIL
     Dosage: UNK
  19. PRILOSEC OTC [Concomitant]
     Active Substance: OMEPRAZOLE MAGNESIUM
     Dosage: UNK
  20. TYLENOL EXTRA STRENGTH [Concomitant]
     Active Substance: ACETAMINOPHEN
     Dosage: UNK
  21. SINGULAIR [Concomitant]
     Active Substance: MONTELUKAST SODIUM
     Dosage: UNK
  22. NIFEDIPINE [Concomitant]
     Active Substance: NIFEDIPINE
  23. TRAVOPROST [Concomitant]
     Active Substance: TRAVOPROST
     Dosage: UNK
  24. ALPHAGAN P [Concomitant]
     Active Substance: BRIMONIDINE TARTRATE
     Dosage: UNK
  25. ALPHA LIPOIC ACID [Concomitant]
     Active Substance: .ALPHA.-LIPOIC ACID
     Dosage: UNK
  26. DRONABINOL [Concomitant]
     Active Substance: DRONABINOL
     Dosage: UNK
  27. MIRTAZAPINE [Concomitant]
     Active Substance: MIRTAZAPINE
     Dosage: UNK
  28. AJOVY [Concomitant]
     Active Substance: FREMANEZUMAB-VFRM
     Dosage: UNK
  29. FISH OIL [Concomitant]
     Active Substance: FISH OIL
  30. NIFEDIPINE [Concomitant]
     Active Substance: NIFEDIPINE
  31. PRILOSEC [Concomitant]
     Active Substance: OMEPRAZOLE MAGNESIUM
  32. PREGABALIN [Concomitant]
     Active Substance: PREGABALIN
     Dosage: UNK
  33. ALFA LIPOIC ACID [Concomitant]

REACTIONS (6)
  - Depressed mood [Unknown]
  - Headache [Unknown]
  - Pruritus [Recovering/Resolving]
  - Accidental exposure to product [Unknown]
  - Exposure via skin contact [Unknown]
  - Product use in unapproved indication [Unknown]

NARRATIVE: CASE EVENT DATE: 20230101
